FAERS Safety Report 23919487 (Version 1)
Quarter: 2024Q2

REPORT INFORMATION
  Report Type: Spontaneous
  Country: DE (occurrence: DE)
  Receive Date: 20240530
  Receipt Date: 20240530
  Transmission Date: 20240716
  Serious: Yes (Other)
  Sender: FDA-Public Use
  Company Number: None

PATIENT
  Age: 31 Year
  Sex: Female
  Weight: 66 kg

DRUGS (2)
  1. PERAMPANEL [Suspect]
     Active Substance: PERAMPANEL
     Indication: Epilepsy
     Dosage: UP TO 6 MG (FREQUENCY UNKNOWN)
     Route: 048
     Dates: start: 20240313, end: 20240502
  2. PERAMPANEL [Suspect]
     Active Substance: PERAMPANEL
     Dosage: REDUCED DOSE AND FREQUENCY UNKNOWN.
     Route: 048
     Dates: start: 20240503

REACTIONS (1)
  - Suicidal ideation [Recovered/Resolved]

NARRATIVE: CASE EVENT DATE: 20240313
